FAERS Safety Report 6722198-2 (Version None)
Quarter: 2010Q2

REPORT INFORMATION
  Report Type: 
  Country: None (occurrence: None)
  Receive Date: 20100512
  Receipt Date: 20100507
  Transmission Date: 20101027
  Serious: Yes (Hospitalization)
  Sender: FDA-Public Use
  Company Number: GB-MERCK-1002GBR00084

PATIENT
  Age: 65 Year
  Sex: Female
  Weight: 92 kg

DRUGS (4)
  1. ZOCOR [Suspect]
     Indication: BLOOD CHOLESTEROL INCREASED
     Route: 048
     Dates: start: 20081031, end: 20090101
  2. ZOCOR [Suspect]
     Route: 048
     Dates: start: 20090101, end: 20091127
  3. AMLODIPINE [Concomitant]
     Indication: HYPERTENSION
     Route: 065
     Dates: start: 20010719
  4. BENDROFLUMETHIAZIDE [Concomitant]
     Indication: HYPERTENSION
     Route: 065
     Dates: start: 20010522

REACTIONS (10)
  - AGEUSIA [None]
  - AMNESIA [None]
  - CONSTIPATION [None]
  - DIZZINESS [None]
  - FORMICATION [None]
  - GENERALISED ANXIETY DISORDER [None]
  - MUSCULOSKELETAL PAIN [None]
  - PALPITATIONS [None]
  - PERICARDITIS [None]
  - URTICARIA [None]
